FAERS Safety Report 5528223-9 (Version None)
Quarter: 2007Q4

REPORT INFORMATION
  Report Type: 
  Country: None (occurrence: None)
  Receive Date: 20071109
  Receipt Date: 20060918
  Transmission Date: 20080405
  Serious: Yes (Hospitalization, Other)
  Sender: FDA-Public Use
  Company Number: PHEH2006US11856

PATIENT
  Sex: Female

DRUGS (8)
  1. ESTRADERM [Suspect]
     Indication: MENOPAUSAL SYMPTOMS
     Dosage: SEE IMAGE
     Route: 062
     Dates: start: 19980429
  2. ESTRADERM [Suspect]
     Indication: MENOPAUSAL SYMPTOMS
     Dosage: SEE IMAGE
     Route: 062
     Dates: start: 19981016
  3. ESTRADERM [Suspect]
     Indication: MENOPAUSAL SYMPTOMS
     Dosage: SEE IMAGE
     Route: 062
     Dates: start: 20000518
  4. ESTRADERM [Suspect]
     Indication: MENOPAUSAL SYMPTOMS
     Dosage: SEE IMAGE
     Route: 062
     Dates: start: 20010222
  5. PREMARIN [Concomitant]
  6. PREMARIN [Concomitant]
  7. ESTRATEST [Concomitant]
  8. CLIMARA [Concomitant]

REACTIONS (14)
  - ARTHRITIS [None]
  - BREAST CANCER [None]
  - BREAST MASS [None]
  - BREAST MICROCALCIFICATION [None]
  - COUGH [None]
  - CYSTITIS INTERSTITIAL [None]
  - DYSPEPSIA [None]
  - FIBROCYSTIC BREAST DISEASE [None]
  - HOT FLUSH [None]
  - LYMPHADENOPATHY [None]
  - MALIGNANT BREAST LUMP REMOVAL [None]
  - MAMMOGRAM ABNORMAL [None]
  - ORAL HERPES [None]
  - OSTEOPOROSIS [None]
